FAERS Safety Report 12618438 (Version 1)
Quarter: 2016Q3

REPORT INFORMATION
  Report Type: Spontaneous
  Country: US (occurrence: US)
  Receive Date: 20160803
  Receipt Date: 20160803
  Transmission Date: 20161109
  Serious: No
  Sender: FDA-Public Use
  Company Number: US-GLAXOSMITHKLINE-US2016103657

PATIENT
  Sex: Female

DRUGS (1)
  1. ATOVAQUONE ORAL SUSPENSION [Suspect]
     Active Substance: ATOVAQUONE
     Indication: PRODUCT USED FOR UNKNOWN INDICATION
     Dosage: UNK
     Route: 048
     Dates: start: 201607

REACTIONS (3)
  - Condition aggravated [Unknown]
  - Headache [Unknown]
  - Nasal congestion [Unknown]
